FAERS Safety Report 8016581-5 (Version None)
Quarter: 2011Q4

REPORT INFORMATION
  Report Type: 
  Country: None (occurrence: None)
  Receive Date: 20111230
  Receipt Date: 20111226
  Transmission Date: 20120403
  Serious: Yes (Death)
  Sender: FDA-Public Use
  Company Number: JP-ASTRAZENECA-2011SE78448

PATIENT

DRUGS (1)
  1. DIPRIVAN [Suspect]
     Route: 042

REACTIONS (1)
  - RHABDOMYOLYSIS [None]
